FAERS Safety Report 9765660 (Version 2)
Quarter: 2014Q1

REPORT INFORMATION
  Report Type: Spontaneous
  Country: US (occurrence: US)
  Receive Date: 20131217
  Receipt Date: 20140218
  Transmission Date: 20141002
  Serious: No
  Sender: FDA-Public Use
  Company Number: US-BIOGENIDEC-2013BI112908

PATIENT
  Age: 46 Year
  Sex: Male

DRUGS (9)
  1. TECFIDERA [Suspect]
     Indication: MULTIPLE SCLEROSIS
     Route: 048
     Dates: start: 201310
  2. TECFIDERA [Suspect]
     Indication: MULTIPLE SCLEROSIS
     Dates: start: 20131108
  3. BACLOFEN [Concomitant]
  4. CELEBREX [Concomitant]
  5. METHADONE [Concomitant]
  6. CYCLOBENZAPRINE [Concomitant]
  7. PRISTIQ [Concomitant]
  8. VIT C [Concomitant]
  9. TRAZODONE [Concomitant]

REACTIONS (4)
  - Pain in extremity [Not Recovered/Not Resolved]
  - Incontinence [Unknown]
  - Fall [Recovered/Resolved]
  - Depression [Unknown]
